FAERS Safety Report 22735673 (Version 2)
Quarter: 2023Q4

REPORT INFORMATION
  Report Type: Report from Study
  Country: GB (occurrence: GB)
  Receive Date: 20230721
  Receipt Date: 20231203
  Transmission Date: 20240110
  Serious: Yes (Other)
  Sender: FDA-Public Use
  Company Number: GB-JNJFOC-20230333962

PATIENT
  Age: 50 Year
  Sex: Female

DRUGS (1)
  1. STELARA [Suspect]
     Active Substance: USTEKINUMAB
     Indication: Crohn^s disease
     Route: 058

REACTIONS (13)
  - Hypertensive crisis [Unknown]
  - Major depression [Unknown]
  - Obsessive-compulsive disorder [Unknown]
  - Administration site pain [Unknown]
  - Lethargy [Not Recovered/Not Resolved]
  - Nausea [Not Recovered/Not Resolved]
  - Headache [Not Recovered/Not Resolved]
  - Herpes zoster [Unknown]
  - Vertigo [Unknown]
  - Insomnia [Unknown]
  - Paraesthesia [Unknown]
  - Anxiety [Unknown]
  - COVID-19 [Unknown]

NARRATIVE: CASE EVENT DATE: 20230201
